FAERS Safety Report 20322514 (Version 1)
Quarter: 2022Q1

REPORT INFORMATION
  Report Type: Report from Study
  Country: FR (occurrence: FR)
  Receive Date: 20220111
  Receipt Date: 20220111
  Transmission Date: 20220423
  Serious: Yes (Other)
  Sender: FDA-Public Use
  Company Number: FR-SERVIER-S22000073

PATIENT

DRUGS (7)
  1. PEGASPARGASE [Suspect]
     Active Substance: PEGASPARGASE
     Indication: Acute lymphocytic leukaemia
     Dosage: 875 IU, D8 AND D36
     Route: 042
     Dates: start: 20210525
  2. PEGASPARGASE [Suspect]
     Active Substance: PEGASPARGASE
     Dosage: 865 IU, D64
     Route: 042
  3. METHOTREXATE [Suspect]
     Active Substance: METHOTREXATE
     Indication: Acute lymphocytic leukaemia
     Dosage: 17.5 MG, D8, D15, D22, D43
     Route: 048
     Dates: start: 20210525, end: 20210803
  4. METHOTREXATE [Suspect]
     Active Substance: METHOTREXATE
     Dosage: 12 MG, D1, D30, D58
     Route: 037
     Dates: start: 20210525, end: 20210803
  5. TN UNSPECIFIED [Concomitant]
     Indication: Acute lymphocytic leukaemia
     Dosage: 35.7 MG, (D1 TO D21, D29 TO D49
     Route: 048
     Dates: start: 20210525, end: 20210803
  6. TN UNSPECIFIED [Concomitant]
     Indication: Acute lymphocytic leukaemia
     Dosage: 4.5 MG, D1 TO D5, D29 TO D33, D57
     Route: 048
     Dates: start: 20210525, end: 20210803
  7. TN UNSPECIFIED [Concomitant]
     Indication: Acute lymphocytic leukaemia
     Dosage: 1.1 MG, D1, D8, D29, D36, D57
     Route: 042
     Dates: start: 20210525, end: 20210803

REACTIONS (3)
  - Hyperbilirubinaemia [Recovering/Resolving]
  - Hepatic cytolysis [Recovering/Resolving]
  - Cholestasis [Recovering/Resolving]

NARRATIVE: CASE EVENT DATE: 20210604
